FAERS Safety Report 23069854 (Version 1)
Quarter: 2023Q4

REPORT INFORMATION
  Report Type: Report from Study
  Country: US (occurrence: US)
  Receive Date: 20231016
  Receipt Date: 20231016
  Transmission Date: 20240110
  Serious: Yes (Other)
  Sender: FDA-Public Use
  Company Number: US-ABBVIE-5449645

PATIENT
  Age: 61 Year
  Sex: Male

DRUGS (2)
  1. VENCLEXTA [Suspect]
     Active Substance: VENETOCLAX
     Indication: Product used for unknown indication
     Dosage: STRENGTH: 100 MG
     Route: 048
     Dates: end: 202309
  2. VENCLEXTA [Suspect]
     Active Substance: VENETOCLAX
     Indication: Product used for unknown indication
     Dosage: DOSE INCREASED?STRENGTH: 100 MG?TOOK FOUR TABLETS BY MOUTH ONCE DAILY WITH FOOD AND A FULL GLASS ...
     Route: 048
     Dates: start: 202309

REACTIONS (2)
  - Loss of consciousness [Unknown]
  - Dehydration [Unknown]

NARRATIVE: CASE EVENT DATE: 20230901
